FAERS Safety Report 7077903-5 (Version None)
Quarter: 2010Q4

REPORT INFORMATION
  Report Type: 
  Country: None (occurrence: None)
  Receive Date: 20101101
  Receipt Date: 20101019
  Transmission Date: 20110411
  Serious: Yes (Other)
  Sender: FDA-Public Use
  Company Number: US-ELI_LILLY_AND_COMPANY-US201010004553

PATIENT
  Sex: Female

DRUGS (6)
  1. ZYPREXA [Suspect]
     Indication: BIPOLAR DISORDER
     Dosage: 5 MG, DAILY (1/D)
     Dates: start: 19980101
  2. ZYPREXA [Suspect]
     Dosage: 2.5 MG, DAILY (1/D)
     Dates: end: 20100501
  3. HALDOL [Concomitant]
  4. DEPAKOTE [Concomitant]
  5. PAXIL [Concomitant]
  6. FLUOXETINE [Concomitant]

REACTIONS (15)
  - ABDOMINAL PAIN UPPER [None]
  - BLOOD CHOLESTEROL INCREASED [None]
  - BLOOD TRIGLYCERIDES INCREASED [None]
  - BRUXISM [None]
  - COUGH [None]
  - HYPERHIDROSIS [None]
  - HYPERSOMNIA [None]
  - RHINORRHOEA [None]
  - SNEEZING [None]
  - TYPE 2 DIABETES MELLITUS [None]
  - URINARY INCONTINENCE [None]
  - VISUAL ACUITY REDUCED [None]
  - VOMITING [None]
  - WEIGHT DECREASED [None]
  - WEIGHT INCREASED [None]
